FAERS Safety Report 19800940 (Version 1)
Quarter: 2021Q3

REPORT INFORMATION
  Report Type: Spontaneous
  Country: IE (occurrence: IE)
  Receive Date: 20210907
  Receipt Date: 20210907
  Transmission Date: 20211014
  Serious: Yes (Disabling, Other)
  Sender: FDA-Public Use
  Company Number: IE-AMERICAN REGENT INC-2021002317

PATIENT
  Age: 38 Year
  Sex: Female

DRUGS (1)
  1. FERINJECT [Suspect]
     Active Substance: FERRIC CARBOXYMALTOSE
     Indication: PRODUCT USED FOR UNKNOWN INDICATION
     Dosage: 1000 UNITS IN 200 ML NORMAL SALINE, 1 DOSE
     Route: 042
     Dates: start: 20210522, end: 2021

REACTIONS (4)
  - Infusion site bruising [Unknown]
  - Infusion site swelling [Unknown]
  - Maternal exposure during pregnancy [Unknown]
  - Skin discolouration [Unknown]

NARRATIVE: CASE EVENT DATE: 20210522
